FAERS Safety Report 13117455 (Version 1)
Quarter: 2017Q1

REPORT INFORMATION
  Report Type: Report from Study
  Country: BR (occurrence: BR)
  Receive Date: 20170116
  Receipt Date: 20170116
  Transmission Date: 20170428
  Serious: Yes (Other)
  Sender: FDA-Public Use
  Company Number: BR-JNJFOC-20160602452

PATIENT
  Sex: Male
  Weight: 130 kg

DRUGS (6)
  1. SIMPONI [Suspect]
     Active Substance: GOLIMUMAB
     Indication: RHEUMATOID ARTHRITIS
     Route: 058
     Dates: start: 201612
  2. SYNTHROID [Concomitant]
     Active Substance: LEVOTHYROXINE SODIUM
     Route: 065
  3. ALOPURINOL [Concomitant]
     Active Substance: ALLOPURINOL
     Route: 065
  4. AMYTRIL [Concomitant]
     Active Substance: AMITRIPTYLINE HYDROCHLORIDE
     Route: 065
  5. SIMPONI [Suspect]
     Active Substance: GOLIMUMAB
     Indication: RHEUMATOID ARTHRITIS
     Route: 058
     Dates: start: 20140618
  6. TECNOMET [Concomitant]
     Active Substance: METHOTREXATE
     Route: 065

REACTIONS (3)
  - Arthropathy [Unknown]
  - Nasopharyngitis [Unknown]
  - Pain [Unknown]
